FAERS Safety Report 26073985 (Version 1)
Quarter: 2025Q4

REPORT INFORMATION
  Report Type: Report from Study
  Country: US (occurrence: US)
  Receive Date: 20251121
  Receipt Date: 20251121
  Transmission Date: 20260117
  Serious: Yes (Other)
  Sender: ACCORD
  Company Number: US-Accord-512843

PATIENT
  Age: 24 Year
  Sex: Female
  Weight: 123.83 kg

DRUGS (14)
  1. MYCOPHENOLIC ACID [Suspect]
     Active Substance: MYCOPHENOLIC ACID
     Indication: Mixed connective tissue disease
     Dosage: FREQUENCY: BID
     Route: 048
     Dates: start: 202408, end: 20251105
  2. GABAPENTIN [Concomitant]
     Active Substance: GABAPENTIN
     Indication: Pain
     Dosage: FREQUENCY: TID
  3. TRILEPTAL [Concomitant]
     Active Substance: OXCARBAZEPINE
     Indication: Affective disorder
     Dosage: TWO TABLETS AT AM AND THREE TABLETS AT PM
     Dates: start: 2020
  4. BELIMUMAB [Concomitant]
     Active Substance: BELIMUMAB
     Indication: Systemic lupus erythematosus
     Dosage: FREQUENCY: WEEKLY
     Dates: start: 2024
  5. LOSARTAN [Concomitant]
     Active Substance: LOSARTAN
     Indication: Mixed connective tissue disease
     Dosage: FREQUENCY: DAILY
     Dates: start: 2024, end: 20251105
  6. TYLENOL [Concomitant]
     Active Substance: ACETAMINOPHEN
     Indication: Pain
     Dosage: FREQUENCY: BID PRN
     Dates: start: 2025
  7. AMLODIPINE [Concomitant]
     Active Substance: AMLODIPINE BESYLATE
     Indication: Mixed connective tissue disease
     Dosage: FREQUENCY: DAILY
     Dates: start: 2024
  8. PREDNISONE [Concomitant]
     Active Substance: PREDNISONE
     Indication: Mixed connective tissue disease
     Dosage: FREQUENCY: DAILY
     Dates: start: 202507
  9. METHYLPHENIDATE [Concomitant]
     Active Substance: METHYLPHENIDATE
     Indication: Attention deficit hyperactivity disorder
     Dosage: FREQUENCY: DAILY
     Dates: start: 2020
  10. ALBUTEROL [Concomitant]
     Active Substance: ALBUTEROL
     Indication: Asthma
     Dosage: INHALER?FREQUENCY: PRN WHEN SICK
  11. HYDROXYCHLOROQUINE [Concomitant]
     Active Substance: HYDROXYCHLOROQUINE
     Indication: Mixed connective tissue disease
     Dosage: FREQUENCY: AT BEDTIME
     Dates: start: 2024
  12. PANTOPRAZOLE [Concomitant]
     Active Substance: PANTOPRAZOLE
     Indication: Gastrooesophageal reflux disease
     Dosage: FREQUENCY: DAILY
     Dates: start: 2024
  13. OZEMPIC [Concomitant]
     Active Substance: SEMAGLUTIDE
     Indication: Weight
     Dosage: FREQUENCY: WEEKLY
     Dates: start: 2024
  14. MELATONIN [Concomitant]
     Active Substance: MELATONIN
     Indication: Sleep disorder
     Dosage: FREQUENCY: AT BEDTIME
     Dates: start: 2010

REACTIONS (3)
  - Maternal exposure before pregnancy [Unknown]
  - Maternal exposure during pregnancy [Unknown]
  - Off label use [Unknown]

NARRATIVE: CASE EVENT DATE: 20240801
